FAERS Safety Report 7525104-6 (Version None)
Quarter: 2011Q2

REPORT INFORMATION
  Report Type: 
  Country: None (occurrence: None)
  Receive Date: 20110606
  Receipt Date: 20091109
  Transmission Date: 20111010
  Serious: Yes (Hospitalization, Other)
  Sender: FDA-Public Use
  Company Number: US-BAYER-200938809NA

PATIENT
  Age: 67 Year
  Sex: Male
  Weight: 91 kg

DRUGS (7)
  1. NITROGLYCERIN [Concomitant]
  2. HEPARIN [Concomitant]
     Dosage: 30,000 UNITS
     Dates: start: 20060512
  3. PROTAMINE SULFATE [Concomitant]
     Dosage: 320 MG
     Route: 042
     Dates: start: 20060512
  4. AMIODARONE HCL [Concomitant]
     Dosage: 150 MG
     Route: 042
     Dates: start: 20060512
  5. TRASYLOL [Suspect]
     Dosage: 400  ML/HOUR
     Route: 042
     Dates: start: 20060512, end: 20060512
  6. INSULIN [Concomitant]
     Dosage: 5 UNITS
     Route: 042
     Dates: start: 20060512
  7. TRASYLOL [Suspect]
     Indication: CORONARY ARTERY BYPASS
     Dosage: 2 ML, ONCE, INTIAL TEST DOSE
     Route: 042
     Dates: start: 20060512, end: 20060512

REACTIONS (11)
  - ANHEDONIA [None]
  - UNEVALUABLE EVENT [None]
  - RENAL FAILURE [None]
  - RENAL IMPAIRMENT [None]
  - STRESS [None]
  - FEAR [None]
  - EMOTIONAL DISTRESS [None]
  - RENAL INJURY [None]
  - ANXIETY [None]
  - PAIN [None]
  - INJURY [None]
